FAERS Safety Report 23628419 (Version 1)
Quarter: 2024Q1

REPORT INFORMATION
  Report Type: Spontaneous
  Country: US (occurrence: US)
  Receive Date: 20240313
  Receipt Date: 20240313
  Transmission Date: 20240410
  Serious: No
  Sender: FDA-Public Use
  Company Number: US-SA-SAC20240311000400

PATIENT
  Age: 22 Year
  Sex: Male

DRUGS (3)
  1. DUPIXENT [Suspect]
     Active Substance: DUPILUMAB
     Indication: Dermatitis atopic
     Dosage: 1 DF, QOW
     Route: 058
     Dates: start: 20230803
  2. METHYLPHENIDATE [Concomitant]
     Active Substance: METHYLPHENIDATE
  3. MELATONIN [Concomitant]
     Active Substance: MELATONIN

REACTIONS (2)
  - Therapeutic response decreased [Unknown]
  - Product dose omission in error [Unknown]
